FAERS Safety Report 4497831-9 (Version None)
Quarter: 2004Q4

REPORT INFORMATION
  Report Type: 
  Country: None (occurrence: None)
  Receive Date: 20041110
  Receipt Date: 20041101
  Transmission Date: 20050328
  Serious: Yes (Hospitalization)
  Sender: FDA-Public Use
  Company Number: US-GLAXOSMITHKLINE-A0532365A

PATIENT
  Age: 8 Year
  Sex: Male
  Weight: 24.5 kg

DRUGS (2)
  1. PAXIL [Suspect]
     Indication: DEPRESSION
     Route: 048
     Dates: start: 20020924, end: 20041022
  2. PAXIL CR [Suspect]
     Indication: DEPRESSION
     Dosage: 25MG AT NIGHT
     Route: 048
     Dates: start: 20021023, end: 20021025

REACTIONS (7)
  - ACUTE PSYCHOSIS [None]
  - AKATHISIA [None]
  - CONDITION AGGRAVATED [None]
  - HALLUCINATION [None]
  - NAUSEA [None]
  - SUICIDAL IDEATION [None]
  - VOMITING [None]
